FAERS Safety Report 7334583-9 (Version None)
Quarter: 2011Q1

REPORT INFORMATION
  Report Type: 
  Country: None (occurrence: None)
  Receive Date: 20110307
  Receipt Date: 20101007
  Transmission Date: 20110831
  Serious: No
  Sender: FDA-Public Use
  Company Number: A0886823A

PATIENT

DRUGS (2)
  1. ROPINIROLE [Suspect]
     Indication: PARKINSONISM
  2. STUDY DRUG (UNSPECIFIED) [Suspect]

REACTIONS (1)
  - DRUG INTERACTION [None]
